FAERS Safety Report 5034852-1 (Version None)
Quarter: 2006Q2

REPORT INFORMATION
  Report Type: 
  Country: None (occurrence: None)
  Receive Date: 20060516
  Receipt Date: 20050720
  Transmission Date: 20061013
  Serious: Yes (Other)
  Sender: FDA-Public Use
  Company Number: WAES 0507USA03314

PATIENT
  Age: 35 Year
  Sex: Female

DRUGS (6)
  1. CRIXIVAN [Suspect]
     Indication: HIV INFECTION
     Dosage: 400 MG/BID/PO
     Route: 048
     Dates: start: 20020101
  2. COMBIVIR [Concomitant]
  3. RETROVIR [Concomitant]
  4. [THERAPY UNSPECIFIED] [Concomitant]
  5. ACYCLOVIR [Concomitant]
  6. ADEFOVIR DIPIVOXIL KIT [Concomitant]

REACTIONS (1)
  - NEPHROLITHIASIS [None]
